FAERS Safety Report 7553574-6 (Version None)
Quarter: 2011Q2

REPORT INFORMATION
  Report Type: 
  Country: None (occurrence: None)
  Receive Date: 20110617
  Receipt Date: 20100819
  Transmission Date: 20111010
  Serious: No
  Sender: FDA-Public Use
  Company Number: US-MYLANLABS-2010S1012612

PATIENT
  Age: 45 Year
  Sex: Male

DRUGS (4)
  1. ACTOS [Suspect]
     Dates: end: 20100501
  2. GLUCOPHAGE [Concomitant]
  3. GLIPIZIDE [Suspect]
     Dates: end: 20100501
  4. PRINIVIL [Concomitant]
     Indication: RENAL DISORDER

REACTIONS (1)
  - PROTEIN TOTAL DECREASED [None]
